FAERS Safety Report 9593487 (Version 2)
Quarter: 2014Q2

REPORT INFORMATION
  Report Type: Report from Study
  Country: US (occurrence: US)
  Receive Date: 20131004
  Receipt Date: 20140530
  Transmission Date: 20141212
  Serious: Yes (Hospitalization)
  Sender: FDA-Public Use
  Company Number: US-ALEXION-A201301693

PATIENT
  Sex: 0

DRUGS (5)
  1. SOLIRIS [Suspect]
     Indication: HAEMOLYTIC URAEMIC SYNDROME
     Dosage: UNK
     Route: 042
  2. SOLIRIS [Suspect]
     Dosage: 1200 MG, Q2W
     Route: 042
     Dates: start: 20121008
  3. ATIVAN [Suspect]
     Indication: PRODUCT USED FOR UNKNOWN INDICATION
     Dosage: UNK, QD 0.05
     Route: 065
     Dates: start: 20121001, end: 201405
  4. CIPRO                              /00697201/ [Concomitant]
     Indication: ANTIBIOTIC LEVEL THERAPEUTIC
     Dosage: UNK
     Route: 065
     Dates: start: 20121004
  5. BENADRYL                           /00000402/ [Concomitant]
     Indication: PRODUCT USED FOR UNKNOWN INDICATION
     Dosage: UNK
     Route: 065
     Dates: start: 201405

REACTIONS (4)
  - Asthenia [Unknown]
  - Nasopharyngitis [Unknown]
  - Depression [Recovered/Resolved]
  - Pruritus [Recovered/Resolved]
